FAERS Safety Report 7200194-9 (Version None)
Quarter: 2010Q4

REPORT INFORMATION
  Report Type: 
  Country: None (occurrence: None)
  Receive Date: 20101228
  Receipt Date: 20101220
  Transmission Date: 20110411
  Serious: Yes (Hospitalization)
  Sender: FDA-Public Use
  Company Number: DE-PFIZER INC-2010176267

PATIENT
  Age: 24 Year
  Sex: Female

DRUGS (3)
  1. PANTOZOL [Suspect]
     Indication: NAUSEA
     Dosage: 20 MG, 1X/DAY
     Route: 048
     Dates: start: 20101029, end: 20101104
  2. CLINDAMYCIN [Interacting]
     Indication: ANTIBIOTIC PROPHYLAXIS
     Dosage: 300 MG, 4X/DAY
     Route: 048
     Dates: start: 20101027, end: 20101028
  3. AMOCLAVE [Interacting]
     Indication: ANTIBIOTIC PROPHYLAXIS
     Dosage: 2 DF, DAILY
     Route: 048
     Dates: start: 20101029, end: 20101107

REACTIONS (2)
  - CLOSTRIDIUM DIFFICILE COLITIS [None]
  - DRUG INTERACTION [None]
